FAERS Safety Report 17965277 (Version 1)
Quarter: 2020Q2

REPORT INFORMATION
  Report Type: Spontaneous
  Country: US (occurrence: US)
  Receive Date: 20200630
  Receipt Date: 20200630
  Transmission Date: 20200714
  Serious: Yes (Other)
  Sender: FDA-Public Use
  Company Number: US-SYNEX-T202002763

PATIENT

DRUGS (2)
  1. HYDROXYCHLOROQUINE [Concomitant]
     Active Substance: HYDROXYCHLOROQUINE
     Indication: COVID-19
     Dosage: UNK, 5-DAY COURSE
     Route: 065
  2. INOMAX [Suspect]
     Active Substance: NITRIC OXIDE
     Indication: COVID-19
     Dosage: UNK, PER INHALATIONAL
     Route: 055

REACTIONS (8)
  - Infection [Unknown]
  - Thrombosis in device [Unknown]
  - Sepsis [Unknown]
  - Drug ineffective for unapproved indication [Unknown]
  - Haemorrhage [Unknown]
  - Renal replacement therapy [Unknown]
  - Acute kidney injury [Unknown]
  - Product use issue [Unknown]
